FAERS Safety Report 6651784-3 (Version None)
Quarter: 2010Q1

REPORT INFORMATION
  Report Type: 
  Country: None (occurrence: None)
  Receive Date: 20100325
  Receipt Date: 20100311
  Transmission Date: 20100710
  Serious: Yes (Other)
  Sender: FDA-Public Use
  Company Number: JP-EISAI INC.-E2020-05972-SPO-JP

PATIENT
  Age: 92 Year
  Sex: Male

DRUGS (15)
  1. ARICEPT [Suspect]
     Indication: VASCULAR DEMENTIA
     Route: 048
     Dates: start: 20090708, end: 20090917
  2. ARICEPT [Suspect]
     Route: 048
     Dates: start: 20091007
  3. RISPERDAL [Concomitant]
     Route: 048
     Dates: start: 20090708, end: 20090917
  4. RISPERDAL [Concomitant]
     Route: 048
     Dates: start: 20091007
  5. CEPHADOL [Concomitant]
     Route: 048
  6. ZANTAC [Concomitant]
     Route: 048
  7. NITROL R [Concomitant]
     Route: 048
  8. PLETAL [Concomitant]
     Route: 048
  9. MENESIT [Concomitant]
     Route: 048
  10. DOPS [Concomitant]
     Route: 048
  11. LIPITOR [Concomitant]
     Route: 048
  12. ASPIRIN [Concomitant]
     Route: 048
  13. NORVASC [Concomitant]
     Route: 048
  14. AMARYL [Concomitant]
     Route: 048
  15. HYALEIN [Concomitant]
     Route: 047

REACTIONS (5)
  - AGGRESSION [None]
  - AGITATION [None]
  - ANGER [None]
  - HOMICIDE [None]
  - PHYSICAL ASSAULT [None]
